FAERS Safety Report 4337074-2 (Version None)
Quarter: 2004Q1

REPORT INFORMATION
  Report Type: 
  Country: None (occurrence: None)
  Receive Date: 20040329
  Receipt Date: 20040122
  Transmission Date: 20041129
  Serious: No
  Sender: FDA-Public Use
  Company Number: USA040157310

PATIENT
  Age: 46 Year
  Sex: Female
  Weight: 77 kg

DRUGS (3)
  1. STRATTERA [Suspect]
     Indication: ATTENTION DEFICIT/HYPERACTIVITY DISORDER
     Dosage: 80 MG/1 DAY
     Dates: start: 20031219
  2. ESTRADIOL [Concomitant]
  3. TRAZADONE (TRAZADONE) [Concomitant]

REACTIONS (3)
  - MIDDLE INSOMNIA [None]
  - PARAESTHESIA [None]
  - POSTNASAL DRIP [None]
